FAERS Safety Report 9191600 (Version 1)
Quarter: 2013Q1

REPORT INFORMATION
  Report Type: Spontaneous
  Country: GB (occurrence: GB)
  Receive Date: 20130326
  Receipt Date: 20130326
  Transmission Date: 20140127
  Serious: Yes (Hospitalization, Other)
  Sender: FDA-Public Use
  Company Number: GB-BAXTER-2013BAX010676

PATIENT
  Age: 60 Year
  Sex: Female
  Weight: 76.2 kg

DRUGS (14)
  1. SODIUM CHLORIDE [Suspect]
     Indication: PRODUCT USED FOR UNKNOWN INDICATION
     Route: 042
     Dates: start: 20130130
  2. SODIUM CHLORIDE [Suspect]
     Route: 042
     Dates: start: 20130130
  3. WATER [Suspect]
     Indication: PRODUCT USED FOR UNKNOWN INDICATION
     Route: 042
  4. HERCEPTIN [Suspect]
     Indication: BREAST CANCER
     Route: 042
     Dates: start: 201005, end: 201105
  5. HERCEPTIN [Suspect]
     Route: 042
     Dates: start: 20130130, end: 20130130
  6. CAPECITABINE [Suspect]
     Indication: BREAST CANCER
     Route: 048
     Dates: start: 20130130
  7. CAPECITABINE [Suspect]
     Route: 048
     Dates: start: 20130130
  8. CODEINE PHOSPHATE [Concomitant]
     Indication: PRODUCT USED FOR UNKNOWN INDICATION
     Route: 065
  9. DIAZEPAM [Concomitant]
     Indication: PRODUCT USED FOR UNKNOWN INDICATION
     Route: 048
  10. LANSOPRAZOLE [Concomitant]
     Indication: PRODUCT USED FOR UNKNOWN INDICATION
     Route: 048
  11. METOCLOPRAMIDE [Concomitant]
     Indication: PRODUCT USED FOR UNKNOWN INDICATION
     Route: 048
  12. ORAMORPH [Concomitant]
     Indication: PRODUCT USED FOR UNKNOWN INDICATION
     Route: 048
  13. PARACETAMOL [Concomitant]
     Indication: PRODUCT USED FOR UNKNOWN INDICATION
     Route: 048
  14. ZOPICLONE [Concomitant]
     Indication: PRODUCT USED FOR UNKNOWN INDICATION
     Route: 048

REACTIONS (8)
  - Malaise [Recovered/Resolved]
  - Dyspnoea [Recovering/Resolving]
  - Somnolence [Recovered/Resolved]
  - Headache [Recovered/Resolved]
  - Pallor [Recovered/Resolved]
  - Musculoskeletal pain [Recovered/Resolved]
  - Infusion related reaction [None]
  - Product quality issue [None]
